FAERS Safety Report 18248248 (Version 1)
Quarter: 2020Q3

REPORT INFORMATION
  Report Type: Spontaneous
  Country: CN (occurrence: CN)
  Receive Date: 20200909
  Receipt Date: 20200909
  Transmission Date: 20201103
  Serious: Yes (Other)
  Sender: FDA-Public Use
  Company Number: CN-FRESENIUS KABI-FK202009203

PATIENT
  Age: 44 Year
  Sex: Male

DRUGS (4)
  1. MOXIFLOXACIN. [Concomitant]
     Active Substance: MOXIFLOXACIN
     Indication: ANTI-INFECTIVE THERAPY
     Dosage: UNKNOWN
     Route: 065
     Dates: start: 202002
  2. METHYLPREDNISOLONE (MANUFACTURER UNKNOWN) [Suspect]
     Active Substance: METHYLPREDNISOLONE
     Indication: COVID-19
     Dosage: UNKNOWN
     Route: 065
     Dates: start: 202002, end: 202002
  3. GANCICLOVIR. [Concomitant]
     Active Substance: GANCICLOVIR
     Indication: ANTI-INFECTIVE THERAPY
     Dosage: UNKNOWN
     Route: 065
     Dates: start: 202002
  4. UMIFENOVIR. [Concomitant]
     Active Substance: UMIFENOVIR
     Indication: ANTI-INFECTIVE THERAPY
     Dosage: UNKNOWN
     Route: 065
     Dates: start: 202002

REACTIONS (2)
  - Disease recurrence [Unknown]
  - COVID-19 [Unknown]
